FAERS Safety Report 18527528 (Version 2)
Quarter: 2022Q3

REPORT INFORMATION
  Report Type: Spontaneous
  Country: CA (occurrence: CA)
  Receive Date: 20201120
  Receipt Date: 20220711
  Transmission Date: 20221027
  Serious: Yes (Death, Hospitalization, Other)
  Sender: FDA-Public Use
  Company Number: CA-GLAXOSMITHKLINE-CA2020GSK226980

PATIENT

DRUGS (2)
  1. AVANDIA [Suspect]
     Active Substance: ROSIGLITAZONE MALEATE
     Indication: Diabetes mellitus
     Dosage: 8 MG, QD
     Route: 048
     Dates: start: 20011220, end: 20080105
  2. AVANDIA [Suspect]
     Active Substance: ROSIGLITAZONE MALEATE
     Dosage: 12 MG, QD
     Route: 048

REACTIONS (11)
  - Cerebrovascular accident [Fatal]
  - Respiratory arrest [Fatal]
  - Arteriosclerosis [Fatal]
  - Acute myocardial infarction [Unknown]
  - Myocardial infarction [Unknown]
  - Cardiac failure congestive [Unknown]
  - Ischaemic cardiomyopathy [Unknown]
  - Hemiparesis [Unknown]
  - Transient ischaemic attack [Unknown]
  - Cardiac disorder [Unknown]
  - Atrioventricular block [Unknown]
